FAERS Safety Report 12465701 (Version 1)
Quarter: 2016Q2

REPORT INFORMATION
  Report Type: Spontaneous
  Country: US (occurrence: US)
  Receive Date: 20160614
  Receipt Date: 20160614
  Transmission Date: 20160815
  Serious: No
  Sender: FDA-Public Use
  Company Number: US-GLAXOSMITHKLINE-US2016GSK079157

PATIENT
  Sex: Female

DRUGS (1)
  1. CARVEDILOL TABLET [Suspect]
     Active Substance: CARVEDILOL
     Indication: CARDIAC FAILURE CONGESTIVE
     Dosage: 25 MG UNK, U

REACTIONS (4)
  - Headache [Unknown]
  - Neck pain [Unknown]
  - Adverse drug reaction [Unknown]
  - Back pain [Unknown]
